FAERS Safety Report 5502138-4 (Version None)
Quarter: 2007Q4

REPORT INFORMATION
  Report Type: 
  Country: None (occurrence: None)
  Receive Date: 20071030
  Receipt Date: 20071024
  Transmission Date: 20080405
  Serious: Yes (Other)
  Sender: FDA-Public Use
  Company Number: GB-JNJFOC-20070905802

PATIENT
  Sex: Male

DRUGS (9)
  1. HALOPERIDOL DECANOATE [Suspect]
     Indication: BIPOLAR I DISORDER
     Route: 030
  2. HALOPERIDOL DECANOATE [Suspect]
     Indication: LEARNING DISORDER
     Route: 030
  3. HALOPERIDOL DECANOATE [Suspect]
     Indication: SCHIZOPHRENIA
     Route: 030
  4. ORAL HALOPERIDOL [Concomitant]
     Indication: LEARNING DISORDER
     Route: 048
  5. ORAL HALOPERIDOL [Concomitant]
     Indication: SCHIZOPHRENIA
     Route: 048
  6. LITHIUM CARBONATE [Concomitant]
     Indication: PSYCHOTIC DISORDER
     Route: 048
  7. BENPERIDOL [Concomitant]
     Indication: HYPERSEXUALITY
     Route: 065
  8. HALOPERIDOL [Concomitant]
     Indication: PSYCHOTIC DISORDER
     Route: 048
  9. CHLORPROMAZINE [Concomitant]
     Indication: PSYCHOTIC DISORDER
     Route: 065

REACTIONS (1)
  - INJECTION SITE ABSCESS [None]
